FAERS Safety Report 9470920 (Version 1)
Quarter: 2013Q3

REPORT INFORMATION
  Report Type: Spontaneous
  Country: US (occurrence: None)
  Receive Date: 20130820
  Receipt Date: 20130820
  Transmission Date: 20140515
  Serious: No
  Sender: FDA-Public Use
  Company Number: None

PATIENT
  Sex: Female

DRUGS (13)
  1. SUCRALFATE [Suspect]
     Indication: GASTRIC ULCER
     Route: 048
     Dates: start: 20130619, end: 20130627
  2. ASPIRIN [Concomitant]
  3. DEPOKOTE DR [Concomitant]
  4. GABAPENTIN [Concomitant]
  5. FOLIC ACID [Concomitant]
  6. LEVOTHYROXINE [Concomitant]
  7. LISINOPRIL [Concomitant]
  8. CARVEDILOL [Concomitant]
  9. FERROUS SULFATE [Concomitant]
  10. SIMVASTATIN [Concomitant]
  11. ESTRADIOL [Concomitant]
  12. GASREFEIFE [Concomitant]
  13. PROMETHAZINE [Concomitant]

REACTIONS (1)
  - Somnolence [None]
